FAERS Safety Report 6196619-0 (Version None)
Quarter: 2009Q2

REPORT INFORMATION
  Report Type: 
  Country: None (occurrence: None)
  Receive Date: 20090520
  Receipt Date: 20090511
  Transmission Date: 20091009
  Serious: Yes (Congenital Anomaly)
  Sender: FDA-Public Use
  Company Number: A0680592A

PATIENT
  Sex: Female

DRUGS (3)
  1. PAROXETINE HCL [Suspect]
     Indication: ANXIETY
     Dates: start: 20060101, end: 20070101
  2. PAXIL [Suspect]
  3. VITAMIN TAB [Concomitant]

REACTIONS (4)
  - CARDIAC MURMUR [None]
  - CONGENITAL ANOMALY [None]
  - DRUG EXPOSURE DURING PREGNANCY [None]
  - NASOPHARYNGEAL REFLUX [None]
